FAERS Safety Report 8876550 (Version 6)
Quarter: 2013Q4

REPORT INFORMATION
  Report Type: Report from Study
  Country: DE (occurrence: DE)
  Receive Date: 20121030
  Receipt Date: 20131126
  Transmission Date: 20140711
  Serious: Yes (Life-Threatening, Hospitalization)
  Sender: FDA-Public Use
  Company Number: DE-ROCHE-1146331

PATIENT
  Age: 69 Year
  Sex: Female
  Weight: 74 kg

DRUGS (7)
  1. TRASTUZUMAB [Suspect]
     Indication: BREAST CANCER
     Dosage: LOADING DOSE CYCLE 1 ONLY (AS PER PROTOCOL)
     Route: 042
     Dates: start: 20120806, end: 20120806
  2. TRASTUZUMAB [Suspect]
     Dosage: MAINTENANCE DOSE?LAST DOSE PRIOR TO FIRST EPISODE OF HEART FAILURE: 15/OCT/2013?LAST DOSE PRIOR TO S
     Route: 042
     Dates: start: 20120827, end: 20130124
  3. PACLITAXEL [Suspect]
     Indication: BREAST CANCER
     Dosage: LAST DOSE PRIOR TO FIRST EPISODE OF HEART FAILURE: 15/OCT/2013
     Route: 042
     Dates: start: 20120806, end: 20121015
  4. OMEPRAZOLE [Concomitant]
     Route: 065
     Dates: start: 20120725
  5. TROMCARDIN [Concomitant]
     Route: 065
     Dates: start: 20120927
  6. ACCUZIDE [Concomitant]
     Route: 065
     Dates: start: 20020630
  7. PERTUZUMAB [Suspect]
     Indication: BREAST CANCER
     Dosage: LAST DOSE PRIR TO SAE ON 15/OCT/2012
     Route: 042
     Dates: start: 20120806

REACTIONS (3)
  - Cardiac failure [Recovered/Resolved]
  - Cardiac failure [Recovered/Resolved]
  - Cardiac failure [Unknown]
